FAERS Safety Report 24117445 (Version 1)
Quarter: 2024Q3

REPORT INFORMATION
  Report Type: Spontaneous
  Country: IE (occurrence: IE)
  Receive Date: 20240722
  Receipt Date: 20240722
  Transmission Date: 20241017
  Serious: Yes (Other)
  Sender: ACCORD
  Company Number: IE-MLMSERVICE-20240705-PI120571-00249-2

PATIENT
  Sex: Female

DRUGS (5)
  1. OXALIPLATIN [Suspect]
     Active Substance: OXALIPLATIN
     Indication: Colorectal cancer stage IV
  2. FLUOROURACIL [Concomitant]
     Active Substance: FLUOROURACIL
     Indication: Colorectal cancer stage IV
  3. LEUCOVORIN [Concomitant]
     Active Substance: LEUCOVORIN\LEUCOVORIN CALCIUM
     Indication: Colorectal cancer stage IV
     Dosage: COMPLETED 11 CYCLES OF ADJUVANT
  4. GOSERELIN ACETATE [Concomitant]
     Active Substance: GOSERELIN ACETATE
  5. FLUOROURACIL [Concomitant]
     Active Substance: FLUOROURACIL
     Indication: Colorectal cancer stage IV
     Dosage: INFUSION OVER 46 H

REACTIONS (1)
  - Focal nodular hyperplasia [Unknown]
